FAERS Safety Report 5200315-3 (Version None)
Quarter: 2007Q1

REPORT INFORMATION
  Report Type: 
  Country: None (occurrence: None)
  Receive Date: 20070105
  Receipt Date: 20061228
  Transmission Date: 20070707
  Serious: Yes (Hospitalization)
  Sender: FDA-Public Use
  Company Number: BR-PFIZER INC-2006145717

PATIENT
  Sex: Female

DRUGS (2)
  1. FRONTAL [Suspect]
     Indication: PANIC DISORDER
     Route: 048
  2. RIVOTRIL [Concomitant]
     Route: 048

REACTIONS (12)
  - CHEST PAIN [None]
  - CYST [None]
  - DIZZINESS [None]
  - DRUG DOSE OMISSION [None]
  - DYSPHONIA [None]
  - FEELING ABNORMAL [None]
  - HYPOAESTHESIA [None]
  - HYPOAESTHESIA FACIAL [None]
  - INCISION SITE COMPLICATION [None]
  - MOVEMENT DISORDER [None]
  - NERVOUSNESS [None]
  - PAIN [None]
